FAERS Safety Report 5916946-9 (Version None)
Quarter: 2008Q4

REPORT INFORMATION
  Report Type: 
  Country: None (occurrence: None)
  Receive Date: 20081008
  Receipt Date: 20080924
  Transmission Date: 20090506
  Serious: Yes (Hospitalization)
  Sender: FDA-Public Use
  Company Number: 2008002497

PATIENT
  Age: 47 Year
  Sex: Male

DRUGS (2)
  1. ERLOTINIB (ERLOTINIB) (TABLET) (ERLOTINIB) [Suspect]
     Indication: NON-SMALL CELL LUNG CANCER
     Dosage: (150 MG, QD), ORAL
     Route: 048
  2. DASATINB [Suspect]
     Indication: NON-SMALL CELL LUNG CANCER
     Dosage: (70 MG, BID), ORAL
     Route: 048

REACTIONS (8)
  - CLOSTRIDIUM DIFFICILE COLITIS [None]
  - DEHYDRATION [None]
  - FLATULENCE [None]
  - HAEMOGLOBIN DECREASED [None]
  - ILEUS [None]
  - PLEURAL EFFUSION [None]
  - PLEURAL FIBROSIS [None]
  - SMALL INTESTINAL OBSTRUCTION [None]
